FAERS Safety Report 9528879 (Version 2)
Quarter: 2014Q1

REPORT INFORMATION
  Report Type: Report from Study
  Country: US (occurrence: US)
  Receive Date: 20130917
  Receipt Date: 20140317
  Transmission Date: 20141002
  Serious: Yes (Hospitalization)
  Sender: FDA-Public Use
  Company Number: US-ABBVIE-13P-163-1147265-00

PATIENT
  Age: 34 Year
  Sex: Female

DRUGS (4)
  1. HUMIRA [Suspect]
     Indication: CROHN^S DISEASE
     Dates: start: 20110608, end: 20120314
  2. HUMIRA [Suspect]
     Dates: start: 20120511
  3. AMBIEN [Concomitant]
     Indication: INSOMNIA
     Dosage: AT SLEEP
  4. FIORICET [Concomitant]
     Indication: SINUS HEADACHE

REACTIONS (5)
  - Large intestine perforation [Recovered/Resolved]
  - Sinusitis [Not Recovered/Not Resolved]
  - Abdominal pain upper [Not Recovered/Not Resolved]
  - Diarrhoea [Not Recovered/Not Resolved]
  - Drug dose omission [Unknown]
